FAERS Safety Report 24021574 (Version 3)
Quarter: 2024Q3

REPORT INFORMATION
  Report Type: Spontaneous
  Country: FR (occurrence: FR)
  Receive Date: 20240627
  Receipt Date: 20240710
  Transmission Date: 20241016
  Serious: No
  Sender: ROCHE
  Company Number: FR-ROCHE-3533477

PATIENT
  Age: 84 Year
  Sex: Female
  Weight: 63.0 kg

DRUGS (1)
  1. VABYSMO [Suspect]
     Active Substance: FARICIMAB\FARICIMAB-SVOA
     Indication: Age-related macular degeneration
     Route: 050
     Dates: start: 20240117, end: 20240117

REACTIONS (5)
  - Uveitis [Recovered/Resolved]
  - Vitritis [Recovered/Resolved]
  - Keratic precipitates [Recovered/Resolved]
  - Iridocyclitis [Recovered/Resolved]
  - Chorioretinitis [Recovered/Resolved]

NARRATIVE: CASE EVENT DATE: 20240126
